FAERS Safety Report 4819854-X (Version None)
Quarter: 2005Q4

REPORT INFORMATION
  Report Type: 
  Country: None (occurrence: None)
  Receive Date: 20051102
  Receipt Date: 20051018
  Transmission Date: 20060501
  Serious: Yes (Hospitalization)
  Sender: FDA-Public Use
  Company Number: 8012905

PATIENT
  Age: 40 Year
  Sex: Male
  Weight: 70 kg

DRUGS (4)
  1. KEPPRA [Suspect]
     Indication: EPILEPSY
     Dosage: 1000 MG 2/D PO
     Route: 048
  2. DILANTIN [Concomitant]
  3. EFFEXOR XR [Concomitant]
  4. RIVOTRIL [Concomitant]

REACTIONS (2)
  - ILEUS PARALYTIC [None]
  - INFECTION [None]
